FAERS Safety Report 8902216 (Version 1)
Quarter: 2012Q4

REPORT INFORMATION
  Report Type: 
  Country: ES (occurrence: ES)
  Receive Date: 20121112
  Receipt Date: 20121112
  Transmission Date: 20130627
  Serious: Yes (Disabling)
  Sender: FDA-Public Use
  Company Number: PHHY2012ES103288

PATIENT
  Age: 56 Year
  Sex: Male

DRUGS (1)
  1. ONBREZ [Suspect]
     Indication: CHRONIC OBSTRUCTIVE PULMONARY DISEASE
     Dosage: 150 mg, UNK
     Route: 048
     Dates: start: 201203, end: 201204

REACTIONS (2)
  - Myopathy [Recovered/Resolved]
  - Incorrect route of drug administration [Unknown]
